FAERS Safety Report 17193402 (Version 8)
Quarter: 2020Q4

REPORT INFORMATION
  Report Type: Report from Study
  Country: JP (occurrence: JP)
  Receive Date: 20191223
  Receipt Date: 20201027
  Transmission Date: 20210113
  Serious: Yes (Hospitalization, Other)
  Sender: FDA-Public Use
  Company Number: JP-JNJFOC-20191223928

PATIENT
  Age: 50 Year
  Sex: Female
  Weight: 53.7 kg

DRUGS (21)
  1. ZOLPIDEM [Concomitant]
     Active Substance: ZOLPIDEM TARTRATE
     Indication: INSOMNIA
     Route: 048
     Dates: start: 20191008
  2. DEXAMETHASONE. [Suspect]
     Active Substance: DEXAMETHASONE
     Dosage: C3D8, MOST RECENT DOSE 10-DEC-2019
     Route: 048
     Dates: start: 20191123
  3. LANSOPRAZOLE. [Concomitant]
     Active Substance: LANSOPRAZOLE
     Indication: GASTRITIS PROPHYLAXIS
     Route: 048
     Dates: start: 20190920
  4. OXYCONTIN [Concomitant]
     Active Substance: OXYCODONE HYDROCHLORIDE
     Indication: CHEST PAIN
     Route: 048
     Dates: start: 20191029
  5. RELUGOLIX. [Concomitant]
     Active Substance: RELUGOLIX
     Indication: MENORRHAGIA
     Route: 048
     Dates: start: 20191018
  6. TRAVELMIN                          /00517301/ [Concomitant]
     Active Substance: DIPHENHYDRAMINE SALICYLATE\DYPHYLLINE
     Indication: NAUSEA
     Dosage: DOSE = 1 TABLET
     Route: 048
     Dates: start: 20190920
  7. LENALIDOMIDE [Suspect]
     Active Substance: LENALIDOMIDE
     Indication: PLASMA CELL MYELOMA
     Route: 048
     Dates: start: 20191007
  8. DARATUMUMAB [Suspect]
     Active Substance: DARATUMUMAB
     Indication: PLASMA CELL MYELOMA
     Route: 058
     Dates: start: 20191007, end: 20191118
  9. DEXAMETHASONE. [Suspect]
     Active Substance: DEXAMETHASONE
     Indication: PLASMA CELL MYELOMA
     Route: 048
     Dates: start: 20191007, end: 20191122
  10. MAGMITT [Concomitant]
     Active Substance: MAGNESIUM OXIDE
     Indication: CONSTIPATION
     Route: 048
     Dates: start: 20191119
  11. DARATUMUMAB [Suspect]
     Active Substance: DARATUMUMAB
     Route: 058
     Dates: start: 20191119
  12. LENALIDOMIDE [Suspect]
     Active Substance: LENALIDOMIDE
     Dosage: C3D8, MOST RECENT DOSE 10-DEC-2019
     Route: 048
     Dates: start: 20191123
  13. BORTEZOMIB. [Suspect]
     Active Substance: BORTEZOMIB
     Indication: PLASMA CELL MYELOMA
     Dosage: MOST RECENT DOSE 29-NOV-2019
     Route: 058
     Dates: start: 20191007
  14. ZOVIRAX [Concomitant]
     Active Substance: ACYCLOVIR
     Indication: PROPHYLAXIS
     Route: 048
     Dates: start: 20191008
  15. PROMAC                             /01312301/ [Concomitant]
     Active Substance: POLAPREZINC
     Indication: TASTE DISORDER
     Dosage: 15% GRANULES
     Route: 048
     Dates: start: 20191108
  16. LENALIDOMIDE [Suspect]
     Active Substance: LENALIDOMIDE
     Dosage: C1D11
     Route: 048
     Dates: start: 20191007, end: 20191122
  17. PANTETHINE [Concomitant]
     Active Substance: PANTETHINE
     Indication: CONSTIPATION
     Route: 048
     Dates: start: 20190919
  18. MAGNESIUM OXIDE. [Concomitant]
     Active Substance: MAGNESIUM OXIDE
     Indication: CONSTIPATION
     Route: 048
     Dates: start: 20190919
  19. BAKTAR [Concomitant]
     Active Substance: SULFAMETHOXAZOLE\TRIMETHOPRIM
     Indication: INFECTION PROPHYLAXIS
     Dosage: DOSE = 1 TABLET
     Route: 048
     Dates: start: 20190926
  20. SENNA SPP. EXTRACT [Concomitant]
     Indication: CONSTIPATION
     Route: 048
     Dates: start: 20190927
  21. LEVOFLOXACIN HEMIHYDRATE [Concomitant]
     Active Substance: LEVOFLOXACIN
     Indication: URINARY TRACT INFECTION
     Route: 048
     Dates: start: 20191112

REACTIONS (1)
  - Intraductal proliferative breast lesion [Recovered/Resolved]

NARRATIVE: CASE EVENT DATE: 20191209
